FAERS Safety Report 10378669 (Version 4)
Quarter: 2015Q2

REPORT INFORMATION
  Report Type: Spontaneous
  Country: US (occurrence: US)
  Receive Date: 20140812
  Receipt Date: 20150528
  Transmission Date: 20150821
  Serious: Yes (Death, Hospitalization, Other)
  Sender: FDA-Public Use
  Company Number: US-009507513-1408USA005699

PATIENT
  Sex: Male
  Weight: 89.12 kg

DRUGS (5)
  1. METOPROLOL [Concomitant]
     Active Substance: METOPROLOL
     Indication: HYPERTENSION
     Dosage: 25 MG, BID
     Route: 048
  2. NIASPAN [Concomitant]
     Active Substance: NIACIN
     Indication: HYPERLIPIDAEMIA
     Dosage: 500 MG, QPM
     Route: 048
     Dates: start: 20080731
  3. JANUVIA [Suspect]
     Active Substance: SITAGLIPTIN PHOSPHATE
     Indication: TYPE 2 DIABETES MELLITUS
     Dosage: 100 MG, DAILY
     Route: 048
     Dates: start: 20080731, end: 201103
  4. LISINOPRIL. [Concomitant]
     Active Substance: LISINOPRIL
     Indication: HYPERTENSION
     Dosage: 20 MG, QD
     Route: 048
  5. ASPIRIN. [Concomitant]
     Active Substance: ASPIRIN
     Indication: CORONARY ARTERY DISEASE
     Dosage: 325 MG, QD
     Route: 048

REACTIONS (49)
  - Pancreatic neuroendocrine tumour metastatic [Fatal]
  - Metastases to spine [Unknown]
  - Diabetes mellitus inadequate control [Unknown]
  - Osteoarthritis [Unknown]
  - Failure to thrive [Unknown]
  - Anaemia [Fatal]
  - Metastases to liver [Unknown]
  - Metastases to lymph nodes [Unknown]
  - Oedema [Unknown]
  - Tooth abscess [Unknown]
  - Tonsillectomy [Unknown]
  - Diverticulum intestinal [Unknown]
  - Hypokalaemia [Unknown]
  - Myocardial ischaemia [Not Recovered/Not Resolved]
  - Hospitalisation [Unknown]
  - Diabetes mellitus [Fatal]
  - Urinary tract infection [Fatal]
  - Tumour invasion [Unknown]
  - Cytopenia [Unknown]
  - Uvulectomy [Unknown]
  - Gastrooesophageal reflux disease [Unknown]
  - Gastrointestinal tract adenoma [Unknown]
  - Biopsy liver [Unknown]
  - Muscle spasms [Unknown]
  - Gastrointestinal disorder [Unknown]
  - Fall [Unknown]
  - Spinal osteoarthritis [Unknown]
  - Intervertebral disc protrusion [Unknown]
  - Hypomagnesaemia [Unknown]
  - Subdural haemorrhage [Unknown]
  - Dizziness [Unknown]
  - Brachial plexopathy [Unknown]
  - Face injury [Unknown]
  - White matter lesion [Unknown]
  - Radiotherapy [Unknown]
  - Constipation [Unknown]
  - Appendicectomy [Unknown]
  - Hypertension [Unknown]
  - Renal cyst [Unknown]
  - Intestinal polyp [Unknown]
  - Metastases to bone [Unknown]
  - Seizure [Unknown]
  - Nasal septal operation [Unknown]
  - Retching [Unknown]
  - Nervous system disorder [Unknown]
  - Petechiae [Unknown]
  - Neuropathy peripheral [Unknown]
  - Carotid artery stenosis [Unknown]
  - Drug ineffective [Unknown]

NARRATIVE: CASE EVENT DATE: 200811
